FAERS Safety Report 5697733-6 (Version None)
Quarter: 2008Q2

REPORT INFORMATION
  Report Type: 
  Country: None (occurrence: None)
  Receive Date: 20080408
  Receipt Date: 20080402
  Transmission Date: 20081010
  Serious: Yes (Disabling)
  Sender: FDA-Public Use
  Company Number: B0515572A

PATIENT
  Age: 27 Year
  Sex: Male

DRUGS (4)
  1. AUGMENTIN '125' [Suspect]
     Indication: DRUG USE FOR UNKNOWN INDICATION
     Route: 065
     Dates: start: 20080307, end: 20080312
  2. ACYLPYRIN [Concomitant]
     Dates: start: 20080307, end: 20080312
  3. PANADOL [Concomitant]
  4. UNKNOWN DRUG [Concomitant]

REACTIONS (4)
  - DRUG ERUPTION [None]
  - PRURITUS [None]
  - RASH GENERALISED [None]
  - RASH MACULO-PAPULAR [None]
